FAERS Safety Report 7959929-X (Version None)
Quarter: 2011Q4

REPORT INFORMATION
  Report Type: 
  Country: None (occurrence: None)
  Receive Date: 20111130
  Receipt Date: 20111117
  Transmission Date: 20120403
  Serious: Yes (Other)
  Sender: FDA-Public Use
  Company Number: 20110815

PATIENT
  Age: 40 Year
  Sex: Male

DRUGS (3)
  1. ZIDOVUDINE [Suspect]
     Indication: HIV INFECTION
  2. STAVUDINE [Suspect]
     Indication: HIV INFECTION
  3. POLYLACTIC ACID [Concomitant]

REACTIONS (9)
  - ENOPHTHALMOS [None]
  - EYES SUNKEN [None]
  - DRY EYE [None]
  - EYELID DISORDER [None]
  - LAGOPHTHALMOS [None]
  - ORBIT ATROPHY [None]
  - PUNCTATE KERATITIS [None]
  - FACIAL WASTING [None]
  - CONDITION AGGRAVATED [None]
